FAERS Safety Report 5071287-X (Version None)
Quarter: 2006Q3

REPORT INFORMATION
  Report Type: 
  Country: None (occurrence: None)
  Receive Date: 20060804
  Receipt Date: 20060718
  Transmission Date: 20061208
  Serious: Yes (Other)
  Sender: FDA-Public Use
  Company Number: US-ROCHE-456176

PATIENT
  Age: 69 Year
  Sex: Male
  Weight: 90.7 kg

DRUGS (9)
  1. CELLCEPT [Suspect]
     Indication: IMMUNOSUPPRESSION
     Route: 048
  2. CELLCEPT [Suspect]
     Route: 048
     Dates: start: 20060224
  3. CYCLOSPORINE [Concomitant]
  4. DILTIAZEM [Concomitant]
     Route: 048
  5. PREVACID [Concomitant]
     Route: 048
  6. TORSEMIDE [Concomitant]
     Route: 048
  7. FLUVASTATIN [Concomitant]
     Route: 048
  8. MULTIVITAMIN NOS [Concomitant]
     Route: 048
  9. LORAZEPAM [Concomitant]
     Route: 048

REACTIONS (3)
  - DYSPEPSIA [None]
  - TACHYCARDIA [None]
  - VENTRICULAR EXTRASYSTOLES [None]
